FAERS Safety Report 7149066-9 (Version None)
Quarter: 2010Q4

REPORT INFORMATION
  Report Type: 
  Country: None (occurrence: None)
  Receive Date: 20101209
  Receipt Date: 20101130
  Transmission Date: 20110411
  Serious: Yes (Other)
  Sender: FDA-Public Use
  Company Number: US-PERRIGO-10US015197

PATIENT
  Sex: Female
  Weight: 70.295 kg

DRUGS (5)
  1. ASPIRIN [Suspect]
     Indication: INTERVERTEBRAL DISC PROTRUSION
     Dosage: EVERY 6 HOURS
     Route: 048
     Dates: start: 20101127, end: 20101129
  2. LAMICTAL [Concomitant]
     Indication: BIPOLAR DISORDER
     Dosage: 200 MG, QD
     Route: 048
     Dates: start: 20100901
  3. SEROQUEL [Concomitant]
     Indication: BIPOLAR DISORDER
     Dosage: 300 MG, QD
     Route: 048
     Dates: start: 20100901
  4. BUSPAR [Concomitant]
     Indication: BIPOLAR DISORDER
     Dosage: 10 MG, PRN
     Route: 048
     Dates: start: 20100901
  5. AMBIEN [Concomitant]
     Indication: INSOMNIA
     Dosage: 10 MG, PRN
     Route: 048
     Dates: start: 20100901

REACTIONS (2)
  - DEAFNESS [None]
  - TINNITUS [None]
